FAERS Safety Report 7839955 (Version 2)
Quarter: 2014Q2

REPORT INFORMATION
  Report Type: Spontaneous
  Country: US (occurrence: US)
  Receive Date: 20110303
  Receipt Date: 20140506
  Transmission Date: 20141212
  Serious: Yes (Other)
  Sender: FDA-Public Use
  Company Number: US-BAYER-2011-019352

PATIENT
  Age: 19 Year
  Sex: Female
  Weight: 88 kg

DRUGS (1)
  1. YASMIN [Suspect]
     Dosage: UNK
     Route: 048
     Dates: start: 200210, end: 200401

REACTIONS (3)
  - Cholelithiasis [Recovered/Resolved]
  - Pain [None]
  - Injury [Recovered/Resolved]
